FAERS Safety Report 13503813 (Version 4)
Quarter: 2020Q1

REPORT INFORMATION
  Report Type: Report from Study
  Country: JP (occurrence: JP)
  Receive Date: 20170502
  Receipt Date: 20200120
  Transmission Date: 20200409
  Serious: Yes (Hospitalization)
  Sender: FDA-Public Use
  Company Number: JP-ACTELION-A-CH2017-153058

PATIENT
  Age: 64 Year
  Sex: Female

DRUGS (14)
  1. OPSUMIT [Suspect]
     Active Substance: MACITENTAN
     Indication: PULMONARY ARTERIAL HYPERTENSION
     Dosage: 10 MG, QD
     Route: 048
     Dates: start: 20160810
  2. UPTRAVI [Suspect]
     Active Substance: SELEXIPAG
     Dosage: 0.4 MG, BID
     Route: 048
     Dates: start: 20170311, end: 20170419
  3. AMLODIPINE [Concomitant]
     Active Substance: AMLODIPINE BESYLATE
  4. NEXIUM [Concomitant]
     Active Substance: ESOMEPRAZOLE MAGNESIUM
  5. ADEMPAS [Suspect]
     Active Substance: RIOCIGUAT
     Indication: PULMONARY ARTERIAL HYPERTENSION
     Dosage: 1-2.5 MG, TID
     Route: 048
     Dates: start: 20160630
  6. CARELOAD [Suspect]
     Active Substance: BERAPROST SODIUM
     Dosage: 180 MCG, BID
     Route: 048
     Dates: start: 20170501
  7. FUROSEMIDE. [Suspect]
     Active Substance: FUROSEMIDE
     Dosage: 40 MG, QD
     Route: 048
  8. CARELOAD [Suspect]
     Active Substance: BERAPROST SODIUM
     Indication: PULMONARY ARTERIAL HYPERTENSION
     Dosage: 60 MCG, BID
     Route: 048
     Dates: start: 20160618, end: 20170303
  9. CARELOAD [Suspect]
     Active Substance: BERAPROST SODIUM
     Dosage: 120 MCG, BID
     Route: 048
     Dates: start: 20170419, end: 20170509
  10. BAYASPIRIN [Concomitant]
     Active Substance: ASPIRIN
  11. LIVALO [Concomitant]
     Active Substance: PITAVASTATIN CALCIUM
  12. FUROSEMIDE. [Suspect]
     Active Substance: FUROSEMIDE
     Indication: CARDIAC FAILURE
     Dosage: 20 MG, QD
     Route: 048
     Dates: start: 20160819, end: 20160823
  13. UPTRAVI [Suspect]
     Active Substance: SELEXIPAG
     Indication: PULMONARY ARTERIAL HYPERTENSION
     Dosage: 0.2 MG, BID
     Route: 048
     Dates: start: 20170304, end: 20170310
  14. LIMAPROST ALFADEX [Concomitant]
     Active Substance: LIMAPROST

REACTIONS (8)
  - Cardiac failure [Recovering/Resolving]
  - Iron deficiency anaemia [Recovered/Resolved]
  - Pulmonary oedema [Recovering/Resolving]
  - Pulmonary congestion [Recovering/Resolving]
  - Haematocrit decreased [Recovered/Resolved]
  - Haemoglobin decreased [Recovered/Resolved]
  - Hypertonic bladder [Recovered/Resolved]
  - Dysgeusia [Recovered/Resolved]

NARRATIVE: CASE EVENT DATE: 20160824
